FAERS Safety Report 17055911 (Version 1)
Quarter: 2019Q4

REPORT INFORMATION
  Report Type: Spontaneous
  Country: DE (occurrence: DE)
  Receive Date: 20191120
  Receipt Date: 20191120
  Transmission Date: 20200122
  Serious: Yes (Disabling)
  Sender: FDA-Public Use
  Company Number: DE-ASTRAZENECA-2019SF61993

PATIENT
  Age: 56 Year
  Sex: Male
  Weight: 72 kg

DRUGS (1)
  1. DURVALUMAB. [Suspect]
     Active Substance: DURVALUMAB
     Indication: NON-SMALL CELL LUNG CANCER
     Dosage: DAILY DOSE: 10 MG/KG MILLIGRAM(S)/KILOGRAM EVERY 2 WEEKS
     Route: 042
     Dates: start: 20190529, end: 20190904

REACTIONS (4)
  - Retinal oedema [Not Recovered/Not Resolved]
  - Cataract cortical [Not Recovered/Not Resolved]
  - Visual acuity reduced [Not Recovered/Not Resolved]
  - Immune-mediated adverse reaction [Not Recovered/Not Resolved]

NARRATIVE: CASE EVENT DATE: 201906
